FAERS Safety Report 8415513-5 (Version None)
Quarter: 2012Q2

REPORT INFORMATION
  Report Type: 
  Country: None (occurrence: None)
  Receive Date: 20120606
  Receipt Date: 20120530
  Transmission Date: 20120825
  Serious: Yes (Hospitalization)
  Sender: FDA-Public Use
  Company Number: US-BAYER-2011-072542

PATIENT
  Age: 37 Year
  Sex: Female
  Weight: 61.224 kg

DRUGS (8)
  1. YASMIN [Suspect]
     Dosage: UNK
     Dates: start: 20031201, end: 20040101
  2. CIPROFLOXACIN [Concomitant]
     Dosage: 500 MG, BID
     Route: 048
     Dates: start: 20040106
  3. ZYRTEC [Concomitant]
     Dosage: 10 MG, QD
     Route: 048
     Dates: start: 20040114
  4. ZITHROMAX [Concomitant]
     Dosage: 250 MG, UNK
     Route: 048
     Dates: start: 20031115
  5. MYTUSSIN AC [Concomitant]
     Indication: COUGH
     Dosage: 2 TEASPOONSFUL, Q4HR
     Route: 048
     Dates: start: 20030218
  6. SYNTHROID [Concomitant]
     Indication: HYPOTHYROIDISM
     Dosage: 100 ?G, QD
     Route: 048
     Dates: start: 19990101
  7. COMBIVENT [Concomitant]
  8. COMBIVENT [Concomitant]
     Dosage: 2 PUFF(S), TID
     Dates: start: 20040127

REACTIONS (7)
  - ANXIETY [None]
  - ANHEDONIA [None]
  - PULMONARY EMBOLISM [None]
  - INJURY [None]
  - FEAR [None]
  - CHEST PAIN [None]
  - PSYCHOLOGICAL TRAUMA [None]
